FAERS Safety Report 5946713-1 (Version None)
Quarter: 2008Q4

REPORT INFORMATION
  Report Type: 
  Country: None (occurrence: None)
  Receive Date: 20081110
  Receipt Date: 20081006
  Transmission Date: 20090506
  Serious: No
  Sender: FDA-Public Use
  Company Number: A0750633A

PATIENT
  Sex: Male

DRUGS (1)
  1. ALTABAX [Suspect]
     Route: 061

REACTIONS (2)
  - PRURITUS [None]
  - RASH [None]
